FAERS Safety Report 10710579 (Version 1)
Quarter: 2015Q1

REPORT INFORMATION
  Report Type: Spontaneous
  Country: FR (occurrence: FR)
  Receive Date: 20150114
  Receipt Date: 20150114
  Transmission Date: 20150721
  Serious: Yes (Death, Other)
  Sender: FDA-Public Use
  Company Number: FR-ELI_LILLY_AND_COMPANY-FR201501002407

PATIENT
  Age: 71 Year
  Sex: Male

DRUGS (5)
  1. PROZAC [Suspect]
     Active Substance: FLUOXETINE HYDROCHLORIDE
     Indication: DEPRESSION
     Dosage: 20MG, DAILY
     Route: 048
     Dates: start: 201410, end: 20141111
  2. SPAGULAX [Concomitant]
     Active Substance: PLANTAGO OVATA SEED
     Dosage: PRN
  3. OROCAL D3 [Concomitant]
     Active Substance: CALCIUM CARBONATE\CHOLECALCIFEROL
  4. MAGNE-B6 [Concomitant]
     Active Substance: MAGNESIUM LACTATE\PYRIDOXINE HYDROCHLORIDE
  5. SERESTA [Concomitant]
     Active Substance: OXAZEPAM
     Indication: INSOMNIA
     Dosage: 1 D/F, EVENING FEW DAYS

REACTIONS (14)
  - Delusion [Unknown]
  - Hyperhidrosis [Unknown]
  - Insomnia [Unknown]
  - Logorrhoea [Unknown]
  - Nervousness [Unknown]
  - Euphoric mood [Unknown]
  - Chills [Unknown]
  - Anxiety [Unknown]
  - Mania [Not Recovered/Not Resolved]
  - Abnormal behaviour [Unknown]
  - Completed suicide [Fatal]
  - Drowning [Fatal]
  - Panic attack [Unknown]
  - Persecutory delusion [Unknown]

NARRATIVE: CASE EVENT DATE: 20141112
